FAERS Safety Report 16176932 (Version 3)
Quarter: 2019Q2

REPORT INFORMATION
  Report Type: Report from Study
  Country: None (occurrence: US)
  Receive Date: 20190409
  Receipt Date: 20190626
  Transmission Date: 20190711
  Serious: Yes (Death)
  Sender: FDA-Public Use
  Company Number: US-ABBVIE-19K-163-2737303-00

PATIENT
  Age: 69 Year
  Sex: Male

DRUGS (1)
  1. VENCLEXTA [Suspect]
     Active Substance: VENETOCLAX
     Indication: CHRONIC LYMPHOCYTIC LEUKAEMIA
     Dosage: TAKE 4-100MG TABLETS (400MG TOTAL) BY MOUTH ONCE DAILY WITH FOOD + WATER.
     Route: 048
     Dates: start: 201803

REACTIONS (4)
  - Asthenia [Fatal]
  - Neoplasm malignant [Fatal]
  - Therapeutic product effect decreased [Unknown]
  - Confusional state [Fatal]

NARRATIVE: CASE EVENT DATE: 201902
